FAERS Safety Report 24727187 (Version 2)
Quarter: 2025Q1

REPORT INFORMATION
  Report Type: Report from Study
  Country: CA (occurrence: CA)
  Receive Date: 20241212
  Receipt Date: 20250227
  Transmission Date: 20250409
  Serious: Yes (Other)
  Sender: AMARIN
  Company Number: CA-Amarin Pharma  Inc-2024AMR000588

PATIENT
  Age: 61 Year
  Sex: Male

DRUGS (1)
  1. VASCEPA [Suspect]
     Active Substance: ICOSAPENT ETHYL
     Indication: Cardiovascular disorder
     Dates: start: 20240126

REACTIONS (2)
  - Syncope [Unknown]
  - Heart rate increased [Unknown]

NARRATIVE: CASE EVENT DATE: 20240101
